FAERS Safety Report 6214641-2 (Version None)
Quarter: 2009Q2

REPORT INFORMATION
  Report Type: 
  Country: None (occurrence: None)
  Receive Date: 20090604
  Receipt Date: 20090528
  Transmission Date: 20091009
  Serious: Yes (Hospitalization, Other)
  Sender: FDA-Public Use
  Company Number: FR-PFIZER INC-2009219122

PATIENT
  Age: 43 Year

DRUGS (10)
  1. TAHOR [Suspect]
     Route: 048
  2. ISOMERIDE [Suspect]
     Dosage: UNK
     Route: 048
     Dates: start: 19950101, end: 19950101
  3. MEDIATOR [Suspect]
     Dosage: UNK
     Route: 048
     Dates: start: 20020101, end: 20030101
  4. PARACETAMOL [Suspect]
     Route: 048
  5. ARIXTRA [Suspect]
     Route: 048
  6. EFFEXOR [Suspect]
     Route: 048
  7. COAPROVEL [Suspect]
  8. LANTUS [Suspect]
     Route: 048
  9. DAONIL [Suspect]
  10. ACUPAN [Suspect]
     Route: 048

REACTIONS (1)
  - PULMONARY ARTERIAL HYPERTENSION [None]
